FAERS Safety Report 9637151 (Version 4)
Quarter: 2014Q1

REPORT INFORMATION
  Report Type: Report from Study
  Country: BR (occurrence: BR)
  Receive Date: 20131022
  Receipt Date: 20140131
  Transmission Date: 20141002
  Serious: Yes (Hospitalization)
  Sender: FDA-Public Use
  Company Number: BR-SA-POMP-1003020

PATIENT
  Sex: Female
  Weight: 14.2 kg

DRUGS (3)
  1. MYOZYME [Suspect]
     Indication: GLYCOGEN STORAGE DISEASE TYPE II
     Dosage: 4 VIALS PER INFUSION
     Route: 042
     Dates: start: 20120402
  2. MYOZYME [Suspect]
     Indication: GLYCOGEN STORAGE DISEASE TYPE II
     Dosage: DOSE : 5 VIALS PER INFUSION
     Route: 042
     Dates: start: 20131007, end: 20131007
  3. PRIMACOR [Concomitant]

REACTIONS (3)
  - Hospitalisation [Unknown]
  - Pyrexia [Recovered/Resolved]
  - Off label use [Unknown]
